FAERS Safety Report 8365506-1 (Version None)
Quarter: 2012Q2

REPORT INFORMATION
  Report Type: 
  Country: None (occurrence: None)
  Receive Date: 20120516
  Receipt Date: 20120510
  Transmission Date: 20120825
  Serious: Yes (Life-Threatening)
  Sender: FDA-Public Use
  Company Number: US-BAXTER-2012BAX004153

PATIENT
  Sex: Female
  Weight: 84.444 kg

DRUGS (4)
  1. DECADRON [Concomitant]
     Indication: ANTIEMETIC SUPPORTIVE CARE
     Dates: start: 20091029
  2. CYCLOPHOSPHAMIDE [Suspect]
     Indication: MULTIPLE SCLEROSIS
     Route: 042
     Dates: start: 20091029, end: 20120411
  3. CYCLOPHOSPHAMIDE [Suspect]
     Route: 042
     Dates: start: 20091029, end: 20120411
  4. ZOFRAN [Concomitant]
     Indication: ANTIEMETIC SUPPORTIVE CARE
     Dates: start: 20091029

REACTIONS (6)
  - TENSION HEADACHE [None]
  - DYSKINESIA [None]
  - FLUSHING [None]
  - ERYTHEMA [None]
  - PRURITUS [None]
  - CHEST DISCOMFORT [None]
